FAERS Safety Report 7918595-X (Version None)
Quarter: 2011Q4

REPORT INFORMATION
  Report Type: 
  Country: None (occurrence: None)
  Receive Date: 20111116
  Receipt Date: 20111110
  Transmission Date: 20120403
  Serious: Yes (Other)
  Sender: FDA-Public Use
  Company Number: CA-ROXANE LABORATORIES, INC.-2011-RO-01636RO

PATIENT
  Age: 41 Year
  Sex: Female

DRUGS (5)
  1. CLOZAPINE [Suspect]
     Dates: start: 20020101
  2. RISPERIDONE [Suspect]
  3. HALOPERIDOL [Suspect]
     Route: 030
  4. LAMOTRIGINE [Suspect]
     Dosage: 250 MG
  5. LAMOTRIGINE [Suspect]
     Indication: PSYCHOTIC BEHAVIOUR
     Dosage: 150 MG
     Dates: start: 20070101

REACTIONS (4)
  - NEUTROPHIL COUNT DECREASED [None]
  - AGRANULOCYTOSIS [None]
  - DRUG INEFFECTIVE [None]
  - EXTRAPYRAMIDAL DISORDER [None]
